FAERS Safety Report 22213652 (Version 2)
Quarter: 2023Q2

REPORT INFORMATION
  Report Type: Spontaneous
  Country: US (occurrence: US)
  Receive Date: 20230414
  Receipt Date: 20230522
  Transmission Date: 20230721
  Serious: No
  Sender: FDA-Public Use
  Company Number: US-BAYER-2023A044704

PATIENT
  Age: 37 Year
  Sex: Female

DRUGS (1)
  1. SKYLA [Suspect]
     Active Substance: LEVONORGESTREL
     Indication: Contraception
     Dosage: 14?G/DAY
     Route: 015
     Dates: start: 20230317, end: 20230324

REACTIONS (4)
  - Back pain [None]
  - Dyspareunia [None]
  - Device physical property issue [None]
  - Device malfunction [None]

NARRATIVE: CASE EVENT DATE: 20230322
